FAERS Safety Report 26086646 (Version 1)
Quarter: 2025Q4

REPORT INFORMATION
  Report Type: Spontaneous
  Country: CA (occurrence: CA)
  Receive Date: 20251125
  Receipt Date: 20251125
  Transmission Date: 20260118
  Serious: Yes (Hospitalization)
  Sender: PFIZER
  Company Number: CA-PFIZER INC-202500215316

PATIENT
  Age: 17 Year
  Sex: Female

DRUGS (2)
  1. IXIFI [Suspect]
     Active Substance: INFLIXIMAB-QBTX
     Indication: Colitis ulcerative
     Dosage: 10 MG/KG (INDUCTION ) (EVERY 8 WEEK, W0,2,6)
     Route: 042
     Dates: start: 20251024
  2. IXIFI [Suspect]
     Active Substance: INFLIXIMAB-QBTX
     Dosage: 10 MG/KG, EVERY 8 WEEK, W0,2,6
     Route: 042
     Dates: start: 20251031

REACTIONS (3)
  - Depressed level of consciousness [Recovering/Resolving]
  - Vomiting [Recovering/Resolving]
  - Treatment failure [Unknown]

NARRATIVE: CASE EVENT DATE: 20250101
